FAERS Safety Report 6918203-0 (Version None)
Quarter: 2010Q3

REPORT INFORMATION
  Report Type: 
  Country: None (occurrence: None)
  Receive Date: 20100806
  Receipt Date: 20100722
  Transmission Date: 20110219
  Serious: Yes (Hospitalization, Other)
  Sender: FDA-Public Use
  Company Number: A-NJ2010-37859

PATIENT
  Age: 70 Year
  Sex: Female
  Weight: 90.7 kg

DRUGS (26)
  1. VENTAVIS [Suspect]
     Indication: PULMONARY ARTERIAL HYPERTENSION
     Dosage: 6XDAY, RESPIRATORY, RESPIRATORY
     Route: 055
     Dates: start: 20090108, end: 20090901
  2. VENTAVIS [Suspect]
     Indication: PULMONARY ARTERIAL HYPERTENSION
     Dosage: 6XDAY, RESPIRATORY, RESPIRATORY
     Route: 055
     Dates: start: 20090901, end: 20100528
  3. AMBRISENTAN (AMBRISENTAN) [Suspect]
     Dosage: 10 MG, QD
     Dates: start: 20081001, end: 20100101
  4. REVATIO [Concomitant]
  5. FERROUS SULFATE TAB [Concomitant]
  6. RANITIDINE HCL [Concomitant]
  7. SIMVASTATIN [Concomitant]
  8. ALLOPURINOL [Concomitant]
  9. GLIMEPIRIDE [Concomitant]
  10. CLONIDINE HCL (CLONIDINE HYDROCHLORIDE) [Concomitant]
  11. LASIX [Concomitant]
  12. ARANESP [Concomitant]
  13. AMLODIPINE BESYLATE [Concomitant]
  14. SPIRIVA [Concomitant]
  15. ADVAIR DISKUS 100/50 [Concomitant]
  16. XOPENEX [Concomitant]
  17. NEURONTIN [Concomitant]
  18. ELESTAT (EPINASTINE HYDROCHLORIDE) [Concomitant]
  19. SYNTHROID [Concomitant]
  20. PHENOBARBITAL TAB [Concomitant]
  21. BONIVA [Concomitant]
  22. AMITRIPTYLINE HYDROCHLORIDE [Concomitant]
  23. PROTONIX [Concomitant]
  24. VYTORIN [Concomitant]
  25. ULTRAM [Concomitant]
  26. FOSINOPRIL SODIUM [Concomitant]

REACTIONS (3)
  - HEPATIC FAILURE [None]
  - RENAL FAILURE [None]
  - SEPSIS [None]
